FAERS Safety Report 8255070-X (Version None)
Quarter: 2012Q1

REPORT INFORMATION
  Report Type: 
  Country: None (occurrence: None)
  Receive Date: 20120328
  Receipt Date: 20120319
  Transmission Date: 20120608
  Serious: Yes (Disabling)
  Sender: FDA-Public Use
  Company Number: 2012MA003721

PATIENT
  Sex: Female

DRUGS (1)
  1. METOCLOPRAMIDE [Suspect]

REACTIONS (8)
  - EMOTIONAL DISORDER [None]
  - MULTIPLE INJURIES [None]
  - PAIN [None]
  - NERVOUS SYSTEM DISORDER [None]
  - ECONOMIC PROBLEM [None]
  - UNEVALUABLE EVENT [None]
  - ANXIETY [None]
  - EMOTIONAL DISTRESS [None]
